FAERS Safety Report 17534861 (Version 1)
Quarter: 2020Q1

REPORT INFORMATION
  Report Type: Spontaneous
  Country: US (occurrence: US)
  Receive Date: 20200312
  Receipt Date: 20200312
  Transmission Date: 20200409
  Serious: No
  Sender: FDA-Public Use
  Company Number: US-SA-2020SA060967

PATIENT
  Sex: Male

DRUGS (1)
  1. TOUJEO [Suspect]
     Active Substance: INSULIN GLARGINE
     Indication: TYPE 2 DIABETES MELLITUS
     Dosage: 23 IU, HS
     Route: 065

REACTIONS (9)
  - Nausea [Unknown]
  - Hypoacusis [Unknown]
  - Photophobia [Unknown]
  - Fatigue [Unknown]
  - Blood glucose decreased [Unknown]
  - Blood glucose increased [Unknown]
  - Headache [Unknown]
  - Product dose omission [Unknown]
  - Cardiac disorder [Unknown]
